FAERS Safety Report 8560936-7 (Version None)
Quarter: 2012Q3

REPORT INFORMATION
  Report Type: 
  Country: None (occurrence: None)
  Receive Date: 20120802
  Receipt Date: 20120725
  Transmission Date: 20120928
  Serious: Yes (Hospitalization)
  Sender: FDA-Public Use
  Company Number: US-ELI_LILLY_AND_COMPANY-US201206007061

PATIENT
  Sex: Female

DRUGS (1)
  1. FORTEO [Suspect]
     Indication: OSTEOPOROSIS
     Dosage: 20 UG, QD
     Dates: start: 20120201

REACTIONS (8)
  - ASTHENIA [None]
  - DYSPNOEA [None]
  - BALANCE DISORDER [None]
  - CHEST PAIN [None]
  - LIGAMENT SPRAIN [None]
  - PAIN IN EXTREMITY [None]
  - DEVICE OCCLUSION [None]
  - FALL [None]
